FAERS Safety Report 14931391 (Version 1)
Quarter: 2018Q2

REPORT INFORMATION
  Report Type: Spontaneous
  Country: FR (occurrence: FR)
  Receive Date: 20180524
  Receipt Date: 20180524
  Transmission Date: 20180711
  Serious: Yes (Other)
  Sender: FDA-Public Use
  Company Number: FR-MERCK KGAA-2048371

PATIENT
  Age: 69 Year
  Sex: Female

DRUGS (1)
  1. NOVOTHYROX [Suspect]
     Active Substance: LEVOTHYROXINE SODIUM
     Indication: HYPOTHYROIDISM
     Dates: start: 201703

REACTIONS (17)
  - Dizziness [None]
  - Loss of personal independence in daily activities [None]
  - Inflammation [None]
  - Arthralgia [None]
  - Dyspepsia [None]
  - Crying [None]
  - Infection susceptibility increased [None]
  - Cytomegalovirus test positive [None]
  - Muscle spasms [None]
  - Impaired driving ability [None]
  - Fatigue [None]
  - Depressed mood [None]
  - Weight increased [None]
  - Myalgia [None]
  - Chronic sinusitis [None]
  - Social avoidant behaviour [None]
  - Vomiting [None]

NARRATIVE: CASE EVENT DATE: 20170701
